FAERS Safety Report 7377915-8 (Version None)
Quarter: 2011Q1

REPORT INFORMATION
  Report Type: 
  Country: None (occurrence: None)
  Receive Date: 20110328
  Receipt Date: 20110322
  Transmission Date: 20110831
  Serious: Yes (Other)
  Sender: FDA-Public Use
  Company Number: US-GENZYME-THYM-1002369

PATIENT
  Age: 14 Year
  Sex: Female

DRUGS (6)
  1. THYMOGLOBULIN [Suspect]
     Indication: PROPHYLAXIS AGAINST TRANSPLANT REJECTION
     Dosage: 1.5 MG/KG, QD
     Route: 042
  2. PREDNISONE [Concomitant]
     Indication: IMMUNOSUPPRESSANT DRUG THERAPY
     Route: 065
  3. TACROLIMUS [Concomitant]
     Indication: IMMUNOSUPPRESSANT DRUG THERAPY
     Route: 065
  4. THYMOGLOBULIN [Suspect]
     Indication: IMMUNOSUPPRESSION
  5. MYCOPHENOLATE MEFETIL [Concomitant]
     Indication: IMMUNOSUPPRESSANT DRUG THERAPY
     Route: 065
  6. THYMOGLOBULIN [Suspect]
     Indication: KIDNEY TRANSPLANT REJECTION

REACTIONS (3)
  - GASTROENTERITIS [None]
  - TRANSPLANT REJECTION [None]
  - KIDNEY TRANSPLANT REJECTION [None]
